FAERS Safety Report 11181115 (Version 1)
Quarter: 2015Q2

REPORT INFORMATION
  Report Type: Spontaneous
  Country: US (occurrence: None)
  Receive Date: 20150610
  Receipt Date: 20150610
  Transmission Date: 20150821
  Serious: Yes (Disabling)
  Sender: FDA-Public Use
  Company Number: None

PATIENT
  Age: 55 Year
  Sex: Female
  Weight: 81.65 kg

DRUGS (3)
  1. ABILIFY [Suspect]
     Active Substance: ARIPIPRAZOLE
     Indication: ANTIDEPRESSANT THERAPY
     Dosage: 2 TABS ?ONCE DAILY
     Dates: start: 20140605, end: 20140705
  2. SERZONE [Concomitant]
     Active Substance: NEFAZODONE HYDROCHLORIDE
  3. WELLBUTRIN [Concomitant]
     Active Substance: BUPROPION HYDROCHLORIDE

REACTIONS (1)
  - Muscle twitching [None]

NARRATIVE: CASE EVENT DATE: 20140605
